FAERS Safety Report 8850471 (Version 2)
Quarter: 2012Q4

REPORT INFORMATION
  Report Type: 
  Country: CZ (occurrence: CZ)
  Receive Date: 20121019
  Receipt Date: 20121122
  Transmission Date: 20130627
  Serious: Yes (Hospitalization)
  Sender: FDA-Public Use
  Company Number: PHHY2012CZ091513

PATIENT
  Sex: Female

DRUGS (21)
  1. AMIODARONE [Suspect]
     Dosage: 200 mg five times weekly
     Route: 048
  2. AMIODARONE [Suspect]
     Route: 042
  3. DOXYCYCLINE [Suspect]
  4. ATORVASTATIN [Suspect]
  5. ACETYLSALICYLIC ACID [Concomitant]
  6. CARVEDILOL [Concomitant]
  7. RAMIPRIL [Concomitant]
  8. FUROSEMIDE [Concomitant]
  9. TRIMETAZIDINE [Concomitant]
  10. SPIRONOLACTONE [Concomitant]
  11. LOSEPRAZOL [Concomitant]
  12. DIGOXIN [Concomitant]
  13. MILK OF MAGNESIA [Concomitant]
  14. LEVOTHYROXINE [Concomitant]
  15. ALLOPURINOL [Concomitant]
  16. GLIMEPIRIDE [Concomitant]
  17. CLONAZEPAM [Concomitant]
  18. OXYCODONE [Concomitant]
  19. DIURETICS [Concomitant]
     Route: 042
  20. POTASSIUM [Concomitant]
  21. MAGNESIUM [Concomitant]

REACTIONS (2)
  - Liver disorder [Recovered/Resolved]
  - Transaminases increased [Recovered/Resolved]
